FAERS Safety Report 25951568 (Version 1)
Quarter: 2025Q4

REPORT INFORMATION
  Report Type: Spontaneous
  Country: EU (occurrence: None)
  Receive Date: 20251023
  Receipt Date: 20251023
  Transmission Date: 20260118
  Serious: Yes (Life-Threatening, Hospitalization)
  Sender: UCB
  Company Number: None

PATIENT
  Age: 64 Year
  Weight: 55 kg

DRUGS (3)
  1. CIMZIA [Suspect]
     Active Substance: CERTOLIZUMAB PEGOL
     Indication: Ankylosing spondylitis
     Dosage: 200 MILLIGRAM
  2. MYFORTIC [Suspect]
     Active Substance: MYCOPHENOLATE SODIUM
     Indication: Renal transplant
     Dosage: 360 MILLIGRAM
  3. PREDNISONE [Suspect]
     Active Substance: PREDNISONE
     Indication: Renal transplant
     Dosage: 10 MILLIGRAM, ONCE DAILY (QD)

REACTIONS (2)
  - Klebsiella sepsis [Recovered/Resolved]
  - Septic shock [Recovered/Resolved]
